FAERS Safety Report 16304924 (Version 2)
Quarter: 2019Q2

REPORT INFORMATION
  Report Type: Spontaneous
  Country: US (occurrence: US)
  Receive Date: 20190513
  Receipt Date: 20190531
  Transmission Date: 20190711
  Serious: Yes (Disabling, Other)
  Sender: FDA-Public Use
  Company Number: US-PFIZER INC-2019199554

PATIENT
  Age: 57 Year
  Sex: Male
  Weight: 107 kg

DRUGS (9)
  1. CELEBREX [Suspect]
     Active Substance: CELECOXIB
     Indication: OSTEOARTHRITIS
     Dosage: 400 MG, 1X/DAY
     Route: 048
     Dates: start: 201302
  2. LYRICA [Concomitant]
     Active Substance: PREGABALIN
     Indication: OSTEONECROSIS
  3. LYRICA [Concomitant]
     Active Substance: PREGABALIN
     Indication: OSTEOARTHRITIS
     Dosage: 300 MG, DAILY
     Route: 048
  4. GABAPENTIN. [Concomitant]
     Active Substance: GABAPENTIN
     Indication: OSTEONECROSIS
  5. CELEBREX [Suspect]
     Active Substance: CELECOXIB
     Indication: POST LAMINECTOMY SYNDROME
  6. CELEBREX [Suspect]
     Active Substance: CELECOXIB
     Indication: OSTEONECROSIS
  7. GABAPENTIN. [Concomitant]
     Active Substance: GABAPENTIN
     Indication: OSTEOARTHRITIS
     Dosage: 600 MG, 3X/DAY
     Route: 048
  8. GABAPENTIN. [Concomitant]
     Active Substance: GABAPENTIN
     Indication: POST LAMINECTOMY SYNDROME
  9. LYRICA [Concomitant]
     Active Substance: PREGABALIN
     Indication: POST LAMINECTOMY SYNDROME

REACTIONS (8)
  - Therapeutic product effect incomplete [Unknown]
  - Product use issue [Not Recovered/Not Resolved]
  - Pain [Unknown]
  - Deep vein thrombosis [Recovered/Resolved with Sequelae]
  - Off label use [Not Recovered/Not Resolved]
  - Gait inability [Unknown]
  - Thrombosis [Unknown]
  - Intentional dose omission [Unknown]

NARRATIVE: CASE EVENT DATE: 201302
